FAERS Safety Report 15635758 (Version 1)
Quarter: 2018Q4

REPORT INFORMATION
  Report Type: Spontaneous
  Country: CA (occurrence: CA)
  Receive Date: 20181120
  Receipt Date: 20181120
  Transmission Date: 20190205
  Serious: Yes (Other)
  Sender: FDA-Public Use
  Company Number: CA-TEVA-2018-CA-978217

PATIENT
  Age: 59 Year
  Sex: Female

DRUGS (8)
  1. ROSUVASTATIN. [Suspect]
     Active Substance: ROSUVASTATIN
     Indication: HYPERCHOLESTEROLAEMIA
     Dosage: 10 MILLIGRAM DAILY;
     Route: 065
  2. PANTOPRAZOLE [Concomitant]
     Active Substance: PANTOPRAZOLE
     Route: 065
  3. SANDOZ FENOFIBRATE E [Concomitant]
  4. EXACT COATED DAILY LOW-DOSE ASA [Concomitant]
  5. APO-GLICLAZIDE MR MODIFIED RELEASE BREAKABLE TABLETS [Concomitant]
  6. COVERSYL (8MG TABLET) [Concomitant]
  7. SANDOZ AMLODIPINE [Concomitant]
     Active Substance: AMLODIPINE MALEATE
  8. APO-SALVENT CFC FREE [Concomitant]
     Route: 065

REACTIONS (2)
  - Chest pain [Recovered/Resolved]
  - Hypertension [Recovered/Resolved]
